FAERS Safety Report 21525126 (Version 1)
Quarter: 2022Q4

REPORT INFORMATION
  Report Type: Spontaneous
  Country: US (occurrence: US)
  Receive Date: 20221030
  Receipt Date: 20221030
  Transmission Date: 20230113
  Serious: Yes (Other)
  Sender: FDA-Public Use
  Company Number: US-SANOFI-01337768

PATIENT
  Sex: Female

DRUGS (1)
  1. DUPIXENT [Suspect]
     Active Substance: DUPILUMAB
     Indication: Eczema
     Dosage: UNK
     Dates: start: 202209

REACTIONS (4)
  - Anaplastic large-cell lymphoma [Unknown]
  - Lymphoma [Unknown]
  - Lymphadenopathy [Unknown]
  - Condition aggravated [Unknown]
